FAERS Safety Report 24950639 (Version 1)
Quarter: 2025Q1

REPORT INFORMATION
  Report Type: Spontaneous
  Country: US (occurrence: None)
  Receive Date: 20250207
  Receipt Date: 20250207
  Transmission Date: 20250409
  Serious: No
  Sender: FDA-CTU
  Company Number: None

PATIENT
  Age: 43 Year
  Sex: Male

DRUGS (1)
  1. COBENFY [Suspect]
     Active Substance: TROSPIUM CHLORIDE\XANOMELINE
     Dosage: FREQUENCY : TWICE A DAY;?
     Route: 048
     Dates: start: 20250130, end: 20250206

REACTIONS (2)
  - Hiccups [None]
  - Therapy cessation [None]

NARRATIVE: CASE EVENT DATE: 20250205
